FAERS Safety Report 8243611-8 (Version None)
Quarter: 2012Q1

REPORT INFORMATION
  Report Type: 
  Country: None (occurrence: None)
  Receive Date: 20120329
  Receipt Date: 20120322
  Transmission Date: 20120608
  Serious: Yes (Hospitalization)
  Sender: FDA-Public Use
  Company Number: US-BAYER-2011-082060

PATIENT
  Age: 50 Year
  Sex: Female
  Weight: 61.224 kg

DRUGS (14)
  1. PROMETRIUM [Concomitant]
     Dosage: 200 MG, UNK
     Route: 048
     Dates: start: 20090223, end: 20090410
  2. ASCORBIC ACID [Concomitant]
     Dosage: UNK
     Dates: start: 20090227
  3. YAZ [Suspect]
     Indication: MENOPAUSE
     Dosage: UNK
     Dates: start: 20081001, end: 20090526
  4. AMITRIPTYLINE HCL [Concomitant]
     Indication: MIGRAINE
     Dosage: 25 MG, UNK
     Route: 048
     Dates: start: 20081126, end: 20090327
  5. YAZ [Suspect]
     Indication: FIBROMA
  6. PROPRANOLOL [Concomitant]
     Indication: MIGRAINE
     Dosage: 80 MG, UNK
     Route: 048
     Dates: start: 20081113, end: 20090720
  7. IBUPROFEN [Concomitant]
     Dosage: 800 MG, UNK
     Route: 048
     Dates: start: 20090223, end: 20090410
  8. DROSPIRENONE AND ETHINYL ESTRADIOL [Suspect]
     Indication: FIBROMA
  9. MACROBID [Concomitant]
     Dosage: 100 MG, BID
     Route: 048
     Dates: start: 20090208
  10. FERROUS SULFATE TAB [Concomitant]
     Dosage: UNK
     Dates: start: 20090227
  11. DROSPIRENONE AND ETHINYL ESTRADIOL [Suspect]
     Indication: MENOPAUSE
     Dosage: UNK
     Dates: start: 20081001, end: 20090526
  12. NITROFURANTOIN [Concomitant]
     Dosage: UNK
     Route: 048
     Dates: start: 20090207, end: 20090211
  13. ESGIC [Concomitant]
     Indication: TENSION HEADACHE
     Dosage: UNK
     Dates: start: 20090501
  14. MULTI-VITAMIN [Concomitant]
     Dosage: UNK UNK, QD
     Dates: start: 20090211

REACTIONS (5)
  - CEREBROVASCULAR ACCIDENT [None]
  - PAIN [None]
  - INJURY [None]
  - HYPOAESTHESIA [None]
  - APHASIA [None]
